FAERS Safety Report 25722002 (Version 2)
Quarter: 2025Q3

REPORT INFORMATION
  Report Type: Spontaneous
  Country: JP (occurrence: JP)
  Receive Date: 20250825
  Receipt Date: 20250919
  Transmission Date: 20251020
  Serious: Yes (Other)
  Sender: MYLAN
  Company Number: JP-VIATRISJAPAN-2025M1070378AA

PATIENT
  Age: 77 Year
  Sex: Male

DRUGS (2)
  1. SOLANAX [Suspect]
     Active Substance: ALPRAZOLAM
     Indication: Product used for unknown indication
     Dosage: 0.2 MILLIGRAM, QID
  2. SOLANAX [Suspect]
     Active Substance: ALPRAZOLAM

REACTIONS (1)
  - Delirium [Unknown]
